FAERS Safety Report 16575714 (Version 1)
Quarter: 2019Q3

REPORT INFORMATION
  Report Type: Report from Study
  Country: None (occurrence: RO)
  Receive Date: 20190716
  Receipt Date: 20190716
  Transmission Date: 20191004
  Serious: Yes (Hospitalization)
  Sender: FDA-Public Use
  Company Number: RO-ABBVIE-19K-135-2853677-00

PATIENT
  Age: 75 Year
  Sex: Male

DRUGS (1)
  1. DUODOPA [Suspect]
     Active Substance: CARBIDOPA\LEVODOPA
     Indication: PARKINSON^S DISEASE
     Dosage: DM=10.00?DC=3.50?ED=1.80?NRED=2;?DMN=0.00?DCN=0.00?EDN=0.00?NREDN=0
     Route: 050
     Dates: start: 20170502

REACTIONS (2)
  - Cholecystitis acute [Recovering/Resolving]
  - General physical condition abnormal [Recovering/Resolving]

NARRATIVE: CASE EVENT DATE: 20190711
